FAERS Safety Report 18816513 (Version 2)
Quarter: 2021Q1

REPORT INFORMATION
  Report Type: Other
  Country: CA (occurrence: CA)
  Receive Date: 20210201
  Receipt Date: 20210326
  Transmission Date: 20210419
  Serious: Yes (Other)
  Sender: FDA-Public Use
  Company Number: CA-APOTEX-2021AP001897

PATIENT
  Age: 27 Year
  Sex: Female

DRUGS (7)
  1. PHENYTOIN. [Suspect]
     Active Substance: PHENYTOIN
     Indication: PRODUCT USED FOR UNKNOWN INDICATION
     Dosage: UNK
     Route: 065
  2. EPOETIN ALFA [Suspect]
     Active Substance: ERYTHROPOIETIN
     Dosage: 4000 INTERNATIONAL UNIT, Q.WK.
     Route: 058
  3. MYCOPHENOLATE MOFETIL. [Suspect]
     Active Substance: MYCOPHENOLATE MOFETIL
     Indication: PRODUCT USED FOR UNKNOWN INDICATION
     Dosage: UNK
     Route: 065
  4. EPOETIN ALFA [Suspect]
     Active Substance: ERYTHROPOIETIN
     Indication: NEPHROGENIC ANAEMIA
     Dosage: 8000 INTERNATIONAL UNIT, Q.WK.
     Route: 058
  5. EPOETIN ALFA [Suspect]
     Active Substance: ERYTHROPOIETIN
     Indication: ANAEMIA OF CHRONIC DISEASE
     Dosage: 5000 INTERNATIONAL UNIT, Q.WK.
     Route: 042
  6. ARANESP [Suspect]
     Active Substance: DARBEPOETIN ALFA
     Indication: PRODUCT USED FOR UNKNOWN INDICATION
     Dosage: 80 MILLIGRAM, Q.WK.
     Route: 058
  7. ARANESP [Suspect]
     Active Substance: DARBEPOETIN ALFA
     Dosage: 60 MILLIGRAM, Q.WK.
     Route: 058

REACTIONS (3)
  - Aplasia pure red cell [Recovered/Resolved]
  - Anti-erythropoietin antibody negative [Recovered/Resolved]
  - Treatment failure [Recovered/Resolved]
